FAERS Safety Report 18276326 (Version 1)
Quarter: 2020Q3

REPORT INFORMATION
  Report Type: Spontaneous
  Country: US (occurrence: US)
  Receive Date: 20200917
  Receipt Date: 20200917
  Transmission Date: 20201103
  Serious: No
  Sender: FDA-Public Use
  Company Number: US-AUROBINDO-AUR-APL-2019-072491

PATIENT
  Age: 43 Year
  Sex: Female
  Weight: 77.1 kg

DRUGS (2)
  1. LEVOTHYROXINE. [Concomitant]
     Active Substance: LEVOTHYROXINE
     Indication: PRODUCT USED FOR UNKNOWN INDICATION
     Dosage: UNK
     Route: 065
  2. DEXTROAMPHETAMINE SULFATE TABLETS, USP 10 MG [Suspect]
     Active Substance: DEXTROAMPHETAMINE SULFATE
     Indication: SLEEP DISORDER
     Dosage: 3 DOSAGE FORM, 3 TIMES A DAY
     Route: 065

REACTIONS (5)
  - Product odour abnormal [Unknown]
  - Headache [Unknown]
  - Product packaging quantity issue [Unknown]
  - Incorrect dosage administered [Unknown]
  - Product use in unapproved indication [Unknown]
